FAERS Safety Report 6161768-X (Version None)
Quarter: 2009Q2

REPORT INFORMATION
  Report Type: 
  Country: None (occurrence: None)
  Receive Date: 20090421
  Receipt Date: 20090407
  Transmission Date: 20091009
  Serious: Yes (Other)
  Sender: FDA-Public Use
  Company Number: PL-ROCHE-626380

PATIENT
  Age: 57 Year
  Sex: Female

DRUGS (13)
  1. BONIVA [Suspect]
     Indication: OSTEOPOROSIS
     Dosage: RECENT DOSE RECEIVED ON 05 APRIL 2009
     Route: 048
     Dates: start: 20070101
  2. ESTRADERM [Concomitant]
     Dosage: ROUTE REPORTED AS PLASTER
     Route: 050
  3. FLUTICASONE PROPIONATE [Concomitant]
     Indication: ASTHMA
  4. VITAMINS NOS [Concomitant]
     Dosage: DRUG NAME REPORTED AS VITAMINES NOS
  5. REVALID [Concomitant]
  6. CALCENATO [Concomitant]
  7. BUDERHIN [Concomitant]
     Dosage: REPORTED AS NASAL DROPS
  8. BUDESONIDE [Concomitant]
  9. CYCLONAMINE [Concomitant]
  10. VITAMIN PP [Concomitant]
     Dosage: DRUG NAME REPORTED AS VIT. PP
  11. CALCIUM DOBESILATE [Concomitant]
  12. POSORUTIN [Concomitant]
     Dosage: REPORTED AS EYE DROPS
  13. PADMA 28 [Concomitant]
     Dosage: DRUG NAME REPORTED AS PADMA BASIC. DRUG TAKEN IN DECEMBER 2008 AND JANUARY 2009.

REACTIONS (7)
  - ARTHRALGIA [None]
  - EYE HAEMORRHAGE [None]
  - FACE OEDEMA [None]
  - MYALGIA [None]
  - VEIN DISORDER [None]
  - VISUAL ACUITY REDUCED [None]
  - VITREOUS DETACHMENT [None]
